FAERS Safety Report 7901495-9 (Version None)
Quarter: 2011Q4

REPORT INFORMATION
  Report Type: 
  Country: None (occurrence: None)
  Receive Date: 20111108
  Receipt Date: 20111102
  Transmission Date: 20120403
  Serious: Yes (Hospitalization)
  Sender: FDA-Public Use
  Company Number: US-ROCHE-1009175

PATIENT
  Age: 65 Year
  Sex: Female
  Weight: 77 kg

DRUGS (3)
  1. AVASTIN [Suspect]
     Indication: ENDOMETRIAL CANCER
     Route: 042
  2. PACLITAXEL [Suspect]
     Indication: ENDOMETRIAL CANCER
     Dosage: FREQUENCY:OVER 3 HOURSON DAY 1 FOR 6 CYCLES
     Route: 042
     Dates: start: 20110621
  3. CARBOPLATIN [Suspect]
     Indication: ENDOMETRIAL CANCER
     Dosage: AUC=6 OVER 30 MINUTES ON DAY 1 FOR 6 CYCLES
     Route: 042
     Dates: start: 20110621

REACTIONS (1)
  - DYSPHAGIA [None]
